FAERS Safety Report 14519988 (Version 3)
Quarter: 2018Q1

REPORT INFORMATION
  Report Type: Report from Study
  Country: ES (occurrence: ES)
  Receive Date: 20180212
  Receipt Date: 20180315
  Transmission Date: 20180509
  Serious: Yes (Hospitalization)
  Sender: FDA-Public Use
  Company Number: ES-EISAI MEDICAL RESEARCH-EC-2018-036064

PATIENT
  Age: 78 Year
  Sex: Male
  Weight: 76 kg

DRUGS (9)
  1. TRAJENTA [Concomitant]
     Active Substance: LINAGLIPTIN
  2. EVEROLIMUS. [Suspect]
     Active Substance: EVEROLIMUS
     Indication: RENAL CANCER
     Route: 048
     Dates: start: 20180105, end: 20180206
  3. APIDRA INSULIN [Concomitant]
  4. ATENOLOL. [Concomitant]
     Active Substance: ATENOLOL
  5. ATORVASTATINE [Concomitant]
     Active Substance: ATORVASTATIN
  6. LANTUS INSULINE [Concomitant]
  7. HIPERTENE [Concomitant]
  8. LENVATINIB [Suspect]
     Active Substance: LENVATINIB
     Indication: RENAL CANCER
     Dosage: BLINDED (18 MG OR 14 MG DAILY)
     Route: 048
     Dates: start: 20180105, end: 20180206
  9. ADIRO [Concomitant]
     Active Substance: ASPIRIN

REACTIONS (2)
  - Diarrhoea [Recovered/Resolved]
  - Influenza [Recovered/Resolved]

NARRATIVE: CASE EVENT DATE: 20180206
